FAERS Safety Report 6174298-6 (Version None)
Quarter: 2009Q2

REPORT INFORMATION
  Report Type: 
  Country: None (occurrence: None)
  Receive Date: 20090430
  Receipt Date: 20080505
  Transmission Date: 20091009
  Serious: No
  Sender: FDA-Public Use
  Company Number: US-ASTRAZENECA-2008UW09307

PATIENT
  Age: 40 Year
  Sex: Female
  Weight: 158.8 kg

DRUGS (14)
  1. NEXIUM [Suspect]
     Indication: GASTROOESOPHAGEAL REFLUX DISEASE
     Route: 048
  2. NORTRIPTYLINE HCL [Interacting]
  3. COUMADIN [Concomitant]
  4. PEPCID [Concomitant]
  5. TOPAMAX [Concomitant]
  6. XOPENEX [Concomitant]
  7. QVAR 40 [Concomitant]
  8. PULMICORT [Concomitant]
  9. NASONEX [Concomitant]
  10. GLUCOPHAGE [Concomitant]
  11. TAVIST [Concomitant]
  12. KLONOPIN [Concomitant]
  13. TYLENOL [Concomitant]
  14. ULTRAM [Concomitant]

REACTIONS (4)
  - ASTHMA [None]
  - DRUG INTERACTION [None]
  - DYSGEUSIA [None]
  - GASTROOESOPHAGEAL REFLUX DISEASE [None]
